FAERS Safety Report 24817893 (Version 2)
Quarter: 2025Q1

REPORT INFORMATION
  Report Type: Spontaneous
  Country: CA (occurrence: CA)
  Receive Date: 20250108
  Receipt Date: 20250128
  Transmission Date: 20250408
  Serious: Yes (Life-Threatening)
  Sender: CSL BEHRING
  Company Number: CA-BEH-2024188316

PATIENT
  Age: 17 Year
  Sex: Male
  Weight: 87 kg

DRUGS (13)
  1. ALBUREX [Suspect]
     Active Substance: ALBUMIN HUMAN
     Indication: Plasmapheresis
     Route: 042
     Dates: start: 20241207, end: 20241207
  2. ALBUREX [Suspect]
     Active Substance: ALBUMIN HUMAN
     Route: 042
     Dates: start: 20241207, end: 20241207
  3. ALBUREX [Suspect]
     Active Substance: ALBUMIN HUMAN
     Route: 042
     Dates: start: 20241207, end: 20241207
  4. ALBUREX [Suspect]
     Active Substance: ALBUMIN HUMAN
     Route: 042
     Dates: start: 20241207, end: 20241207
  5. ALBUREX [Suspect]
     Active Substance: ALBUMIN HUMAN
     Route: 042
     Dates: start: 20241207, end: 20241207
  6. ALBUREX [Suspect]
     Active Substance: ALBUMIN HUMAN
     Route: 042
     Dates: start: 20241207, end: 20241207
  7. ALBUREX [Suspect]
     Active Substance: ALBUMIN HUMAN
     Route: 042
     Dates: start: 20241207, end: 20241207
  8. CALCIUM CHLORIDE [Concomitant]
     Active Substance: CALCIUM CHLORIDE
     Indication: Mineral supplementation
     Route: 042
     Dates: start: 20241207, end: 20241207
  9. ACD-A [Concomitant]
     Active Substance: CITRIC ACID MONOHYDRATE\DEXTROSE MONOHYDRATE\SODIUM CITRATE
     Indication: Anticoagulant therapy
     Route: 042
     Dates: start: 20241207, end: 20241207
  10. HYDROCORTISONE [Concomitant]
     Active Substance: HYDROCORTISONE
  11. BENADRYL [Concomitant]
     Active Substance: DIPHENHYDRAMINE HYDROCHLORIDE
  12. CETIRIZINE [Concomitant]
     Active Substance: CETIRIZINE HYDROCHLORIDE
  13. MONTELUKAST [Concomitant]
     Active Substance: MONTELUKAST

REACTIONS (8)
  - Hypersensitivity [Recovered/Resolved]
  - Hypotension [Recovered/Resolved]
  - Nausea [Recovered/Resolved]
  - Bradycardia [Recovered/Resolved]
  - Headache [Recovered/Resolved]
  - Chills [Recovered/Resolved]
  - Urticaria [Recovered/Resolved]
  - Vomiting [Recovered/Resolved]

NARRATIVE: CASE EVENT DATE: 20241207
